FAERS Safety Report 21332800 (Version 1)
Quarter: 2022Q3

REPORT INFORMATION
  Report Type: Spontaneous
  Country: CN (occurrence: CN)
  Receive Date: 20220914
  Receipt Date: 20220914
  Transmission Date: 20221027
  Serious: Yes (Other)
  Sender: FDA-Public Use
  Company Number: CN-PFIZER INC-PV202200061066

PATIENT
  Age: 2 Year
  Sex: Female
  Weight: 10.7 kg

DRUGS (1)
  1. CYTARABINE [Suspect]
     Active Substance: CYTARABINE
     Indication: Acute lymphocytic leukaemia
     Dosage: 0.025 G, 2X/DAY
     Route: 058
     Dates: start: 20220901, end: 20220908

REACTIONS (5)
  - Pyrexia [Recovered/Resolved]
  - Infection [Unknown]
  - White blood cell count decreased [Unknown]
  - Neutrophil percentage increased [Unknown]
  - Interleukin level increased [Unknown]

NARRATIVE: CASE EVENT DATE: 20220901
